FAERS Safety Report 15378888 (Version 1)
Quarter: 2018Q3

REPORT INFORMATION
  Report Type: Spontaneous
  Country: US (occurrence: US)
  Receive Date: 20180906
  Receipt Date: 20180906
  Transmission Date: 20181010
  Serious: Yes (Hospitalization)
  Sender: FDA-Public Use
  Company Number: None

PATIENT
  Age: 9 Year
  Sex: Female
  Weight: 27.3 kg

DRUGS (6)
  1. ONCASPAR [Suspect]
     Active Substance: PEGASPARGASE
     Dates: end: 20180712
  2. VINCRISTINE SULFATE. [Suspect]
     Active Substance: VINCRISTINE SULFATE
     Dates: end: 20180716
  3. DAUNORUBICIN [Suspect]
     Active Substance: DAUNORUBICIN
     Dates: end: 20180716
  4. DEXAMETHASONE. [Suspect]
     Active Substance: DEXAMETHASONE
     Dates: end: 20180723
  5. CYTARABINE. [Suspect]
     Active Substance: CYTARABINE
     Dates: end: 20180709
  6. METHOTREXATE. [Suspect]
     Active Substance: METHOTREXATE
     Dates: end: 20180716

REACTIONS (10)
  - Clostridium test positive [None]
  - Colitis [None]
  - Tachypnoea [None]
  - Pyrexia [None]
  - Abdominal pain [None]
  - Escherichia test positive [None]
  - Tachycardia [None]
  - Therapy non-responder [None]
  - Hypotension [None]
  - Pathogen resistance [None]

NARRATIVE: CASE EVENT DATE: 20180723
